FAERS Safety Report 10214371 (Version 1)
Quarter: 2014Q2

REPORT INFORMATION
  Report Type: Spontaneous
  Country: SI (occurrence: SI)
  Receive Date: 20140603
  Receipt Date: 20140603
  Transmission Date: 20141212
  Serious: Yes (Life-Threatening)
  Sender: FDA-Public Use
  Company Number: SI-TEVA-483788ISR

PATIENT
  Age: 68 Year
  Sex: Female

DRUGS (2)
  1. LOQUEN [Suspect]
     Indication: DEPRESSION
     Dosage: 25 MILLIGRAM DAILY; 25 MG IN THE EVENINGS
     Route: 048
  2. BIPHOSPHONATES [Concomitant]
     Indication: OSTEOPOROSIS

REACTIONS (7)
  - Asthenia [Recovered/Resolved]
  - Irritability [Recovered/Resolved]
  - Apathy [Recovered/Resolved]
  - Decreased appetite [Recovered/Resolved]
  - Negative thoughts [Recovered/Resolved]
  - Fear [Recovered/Resolved]
  - Suicidal ideation [Recovered/Resolved]
